FAERS Safety Report 19111420 (Version 3)
Quarter: 2021Q4

REPORT INFORMATION
  Report Type: Spontaneous
  Country: US (occurrence: BR)
  Receive Date: 20210408
  Receipt Date: 20211001
  Transmission Date: 20220303
  Serious: Yes (Disabling, Other)
  Sender: FDA-Public Use
  Company Number: BR-BIOMARINAP-BR-2021-135909

PATIENT
  Age: 6 Year
  Sex: Female
  Weight: 31 kg

DRUGS (1)
  1. ALDURAZYME [Suspect]
     Active Substance: LARONIDASE
     Indication: Mucopolysaccharidosis I
     Dosage: 8 AMPOULES, Q15D
     Route: 042
     Dates: start: 20181201

REACTIONS (5)
  - Spinal cord compression [Unknown]
  - Walking disability [Unknown]
  - Fall [Unknown]
  - Balance disorder [Unknown]
  - Inappropriate schedule of product administration [Unknown]

NARRATIVE: CASE EVENT DATE: 20190101
